FAERS Safety Report 12051223 (Version 1)
Quarter: 2016Q1

REPORT INFORMATION
  Report Type: Spontaneous
  Country: US (occurrence: None)
  Receive Date: 20160208
  Receipt Date: 20160208
  Transmission Date: 20160526
  Serious: Yes (Disabling)
  Sender: FDA-Public Use
  Company Number: None

PATIENT
  Age: 60 Year
  Sex: Female
  Weight: 95.26 kg

DRUGS (32)
  1. IRBESARTAN. [Concomitant]
     Active Substance: IRBESARTAN
  2. VITAMIN E [Concomitant]
     Active Substance: .ALPHA.-TOCOPHEROL
  3. SYMBION SUPER PROBIOTIC [Concomitant]
  4. VALSARTAN DIOVAN 320 MG [Suspect]
     Active Substance: VALSARTAN
     Indication: HYPERTENSION
     Route: 048
  5. ROPINIROLE. [Concomitant]
     Active Substance: ROPINIROLE
  6. DALIRESP [Concomitant]
     Active Substance: ROFLUMILAST
  7. VITAMIN C [Concomitant]
     Active Substance: ASCORBIC ACID
  8. FOLIC ACID. [Concomitant]
     Active Substance: FOLIC ACID
  9. NIACIN ER [Concomitant]
     Active Substance: NIACIN
  10. DOXEPIN [Concomitant]
     Active Substance: DOXEPIN
  11. DEXILANT [Concomitant]
     Active Substance: DEXLANSOPRAZOLE
  12. VITAMIN D [Concomitant]
     Active Substance: CHOLECALCIFEROL
  13. ALLERGAN [Concomitant]
     Active Substance: PAPAIN
  14. LANTUS SOLOSTAR [Concomitant]
     Active Substance: INSULIN GLARGINE
  15. CARVEDILOL. [Concomitant]
     Active Substance: CARVEDILOL
  16. TIZANDIDINE [Concomitant]
  17. DULOXETINE. [Concomitant]
     Active Substance: DULOXETINE
  18. WOMEN^S MULTI-VITAMIN [Concomitant]
  19. HSYLLIUM HUSK FIBER [Concomitant]
  20. FLAXSEED [Concomitant]
     Active Substance: FLAX SEED
  21. MAGNESIUM [Concomitant]
     Active Substance: MAGNESIUM
  22. NYSTATIN. [Concomitant]
     Active Substance: NYSTATIN
  23. VITAMIN B12 [Concomitant]
     Active Substance: CYANOCOBALAMIN
  24. JANUVIA [Concomitant]
     Active Substance: SITAGLIPTIN PHOSPHATE
  25. BUPROPION. [Concomitant]
     Active Substance: BUPROPION
  26. AMITIZA [Concomitant]
     Active Substance: LUBIPROSTONE
  27. ASPIRIN FULL STRENGTH [Concomitant]
  28. OMEGA 3 [Concomitant]
     Active Substance: OMEGA-3 FATTY ACIDS
  29. CRESTOR [Concomitant]
     Active Substance: ROSUVASTATIN CALCIUM
  30. FLUCONAZOLE. [Concomitant]
     Active Substance: FLUCONAZOLE
  31. NOVOLOG [Concomitant]
     Active Substance: INSULIN ASPART
  32. FUROSEMIDE. [Concomitant]
     Active Substance: FUROSEMIDE

REACTIONS (10)
  - Feeling hot [None]
  - Diplopia [None]
  - Nasal cyst [None]
  - Contusion [None]
  - Headache [None]
  - Pain in extremity [None]
  - Fear [None]
  - Therapy cessation [None]
  - Balance disorder [None]
  - Fall [None]

NARRATIVE: CASE EVENT DATE: 20151023
